FAERS Safety Report 21672146 (Version 5)
Quarter: 2023Q2

REPORT INFORMATION
  Report Type: Report from Study
  Country: US (occurrence: US)
  Receive Date: 20221202
  Receipt Date: 20230504
  Transmission Date: 20230722
  Serious: No
  Sender: FDA-Public Use
  Company Number: US-002147023-NVSC2022US278258

PATIENT
  Sex: Female

DRUGS (6)
  1. COSENTYX [Suspect]
     Active Substance: SECUKINUMAB
     Indication: Psoriasis
     Dosage: 300 MG, QMO
     Route: 058
     Dates: start: 202110, end: 202204
  2. COSENTYX [Suspect]
     Active Substance: SECUKINUMAB
     Indication: Psoriatic arthropathy
  3. DESONIDE [Suspect]
     Active Substance: DESONIDE
     Indication: Psoriasis
     Dosage: 0.05 %
     Route: 061
  4. METHOTREXATE [Suspect]
     Active Substance: METHOTREXATE
     Indication: Psoriasis
     Dosage: UNK
     Route: 065
  5. METHOTREXATE [Suspect]
     Active Substance: METHOTREXATE
     Indication: Psoriatic arthropathy
  6. CLOBETASOL [Suspect]
     Active Substance: CLOBETASOL
     Indication: Psoriasis
     Dosage: UNK
     Route: 065

REACTIONS (7)
  - Drug hypersensitivity [Unknown]
  - Drug intolerance [Unknown]
  - Psoriasis [Unknown]
  - Arthralgia [Unknown]
  - Contraindicated product administered [Unknown]
  - Product use in unapproved indication [Unknown]
  - Drug ineffective [Unknown]
